FAERS Safety Report 15928820 (Version 1)
Quarter: 2019Q1

REPORT INFORMATION
  Report Type: Spontaneous
  Country: US (occurrence: US)
  Receive Date: 20190206
  Receipt Date: 20190206
  Transmission Date: 20190417
  Serious: Yes (Other)
  Sender: FDA-Public Use
  Company Number: US-ASTRAZENECA-2019SE19479

PATIENT
  Age: 59 Year
  Sex: Female
  Weight: 81.6 kg

DRUGS (25)
  1. OXYCODONE ACETAMINOPHEN [Concomitant]
     Active Substance: ACETAMINOPHEN\OXYCODONE HYDROCHLORIDE
     Indication: PAIN
     Dosage: 7.5 325 MG Q4 TO 6 HRS PRN
     Route: 048
     Dates: start: 201701
  2. NAC [Concomitant]
     Indication: IMMUNE SYSTEM DISORDER
     Route: 048
     Dates: start: 201701
  3. HYDROXYZINE [Concomitant]
     Active Substance: HYDROXYZINE HYDROCHLORIDE
     Indication: ANXIETY
     Dosage: 25.0MG AS REQUIRED
     Route: 048
     Dates: start: 201702
  4. MELATONIN [Concomitant]
     Active Substance: MELATONIN
     Indication: SLEEP DISORDER
     Route: 048
     Dates: start: 201701
  5. FIBERCON [Concomitant]
     Active Substance: CALCIUM POLYCARBOPHIL
     Indication: ILL-DEFINED DISORDER
     Dosage: AT NIGHT
     Route: 048
     Dates: start: 201701
  6. SENOKOT-S [Concomitant]
     Active Substance: DOCUSATE SODIUM\SENNOSIDES
     Indication: CONSTIPATION
     Dosage: UNK, TWO TIMES A DAY
     Route: 048
     Dates: start: 201701
  7. XGEVA [Concomitant]
     Active Substance: DENOSUMAB
     Indication: BONE DISORDER
     Dosage: MONTHLY
     Route: 058
     Dates: start: 20171205
  8. FISH OIL [Concomitant]
     Active Substance: FISH OIL
     Indication: SUPPLEMENTATION THERAPY
     Route: 048
     Dates: start: 2009
  9. TUMERIC [Concomitant]
     Active Substance: HERBALS\TURMERIC
     Indication: ARTHRALGIA
     Route: 048
     Dates: start: 201701
  10. PHENERGAN [Concomitant]
     Active Substance: PROMETHAZINE HYDROCHLORIDE
     Indication: NAUSEA
     Dosage: AS REQUIRED
     Dates: start: 201701
  11. PHENAZOPYRIDINE. [Concomitant]
     Active Substance: PHENAZOPYRIDINE
     Indication: MUSCLE SPASMS
     Dosage: 100, AS REQUIRED
     Route: 048
     Dates: start: 201705
  12. FASLODEX [Suspect]
     Active Substance: FULVESTRANT
     Indication: BREAST CANCER FEMALE
     Route: 030
     Dates: start: 20171205
  13. LYNPARZA [Suspect]
     Active Substance: OLAPARIB
     Indication: BREAST CANCER METASTATIC
     Route: 048
     Dates: start: 20190108
  14. VITAMIN C [Concomitant]
     Active Substance: ASCORBIC ACID
     Indication: PROPHYLAXIS
     Route: 048
     Dates: start: 2009
  15. MULTI VITAMIN [Concomitant]
     Active Substance: VITAMINS
     Dosage: DAILY
     Route: 048
  16. EXCEDRIN [Concomitant]
     Active Substance: ACETAMINOPHEN\ASPIRIN\CAFFEINE
     Indication: HEADACHE
     Dosage: AS REQUIRED
     Route: 048
     Dates: start: 201701
  17. ATIVAN [Concomitant]
     Active Substance: LORAZEPAM
     Indication: SLEEP DISORDER
     Dosage: 1.0MG AS REQUIRED
     Route: 048
     Dates: start: 201701
  18. LIVER DEFENSE [Concomitant]
     Indication: METASTASES TO LIVER
     Dosage: DAILY
     Route: 048
     Dates: start: 2017
  19. IMMUNOGLOBULINS [Concomitant]
     Active Substance: IMMUNE GLOBULIN NOS
     Indication: IMMUNE SYSTEM DISORDER
     Route: 048
     Dates: start: 201701
  20. XANAX [Concomitant]
     Active Substance: ALPRAZOLAM
     Indication: SLEEP DISORDER
     Route: 048
     Dates: start: 201701
  21. FASLODEX [Suspect]
     Active Substance: FULVESTRANT
     Indication: BREAST CANCER FEMALE
     Route: 030
     Dates: start: 20190102
  22. ZOFRAN [Concomitant]
     Active Substance: ONDANSETRON HYDROCHLORIDE
     Indication: NAUSEA
     Dosage: 4.0MG AS REQUIRED
     Route: 048
     Dates: start: 201701
  23. PALBOCICLIB [Suspect]
     Active Substance: PALBOCICLIB
     Indication: BREAST CANCER FEMALE
     Route: 048
     Dates: start: 20171205
  24. VITAMIN D [Concomitant]
     Active Substance: CHOLECALCIFEROL
     Indication: SUPPLEMENTATION THERAPY
     Dosage: 4000 UNITS 4 TIMES WEEKLY
     Route: 048
     Dates: start: 201701
  25. HYDROCODONE BITARTRATE AND ACETAMINOPHEN [Concomitant]
     Active Substance: ACETAMINOPHEN\HYDROCODONE BITARTRATE
     Indication: PAIN
     Dosage: 500 325 MG Q6HRS AS REQUIRED
     Route: 048
     Dates: start: 201701

REACTIONS (11)
  - Limb discomfort [Recovered/Resolved]
  - Asthenia [Recovering/Resolving]
  - Brain neoplasm [Not Recovered/Not Resolved]
  - Sensory loss [Recovering/Resolving]
  - Hepatic cancer [Unknown]
  - Brain oedema [Unknown]
  - Partial seizures [Recovered/Resolved]
  - Sleep disorder [Recovering/Resolving]
  - Loss of personal independence in daily activities [Recovering/Resolving]
  - Dizziness [Not Recovered/Not Resolved]
  - Metastases to liver [Unknown]

NARRATIVE: CASE EVENT DATE: 2017
